FAERS Safety Report 13617014 (Version 1)
Quarter: 2017Q2

REPORT INFORMATION
  Report Type: Spontaneous
  Country: US (occurrence: US)
  Receive Date: 20170606
  Receipt Date: 20170606
  Transmission Date: 20170830
  Serious: No
  Sender: FDA-Public Use
  Company Number: US-SA-2016SA145963

PATIENT
  Age: 80 Year
  Sex: Female

DRUGS (2)
  1. SOLOSTAR [Concomitant]
     Active Substance: DEVICE
     Indication: TYPE 2 DIABETES MELLITUS
     Route: 065
     Dates: start: 2015
  2. LANTUS SOLOSTAR [Suspect]
     Active Substance: INSULIN GLARGINE
     Indication: TYPE 2 DIABETES MELLITUS
     Dosage: DOSE: 30 UNITS AM AND 11 UNITS PM
     Route: 065
     Dates: start: 2015

REACTIONS (5)
  - Back disorder [Unknown]
  - Condition aggravated [Unknown]
  - Drug dose omission [Unknown]
  - Nerve compression [Unknown]
  - Product use issue [Unknown]

NARRATIVE: CASE EVENT DATE: 201506
